FAERS Safety Report 7366481-9 (Version None)
Quarter: 2011Q1

REPORT INFORMATION
  Report Type: 
  Country: None (occurrence: None)
  Receive Date: 20110322
  Receipt Date: 20110308
  Transmission Date: 20110831
  Serious: Yes (Hospitalization)
  Sender: FDA-Public Use
  Company Number: US-JNJFOC-20101002426

PATIENT
  Sex: Male
  Weight: 44 kg

DRUGS (5)
  1. METRONIDAZOLE [Concomitant]
     Route: 065
  2. PREDNISONE [Concomitant]
     Route: 065
  3. CIPRO [Concomitant]
     Route: 065
  4. INFLIXIMAB, RECOMBINANT [Suspect]
     Route: 042
  5. INFLIXIMAB, RECOMBINANT [Suspect]
     Indication: INFLAMMATION
     Route: 042

REACTIONS (1)
  - CELLULITIS [None]
